FAERS Safety Report 7793435-0 (Version None)
Quarter: 2011Q4

REPORT INFORMATION
  Report Type: 
  Country: None (occurrence: None)
  Receive Date: 20111003
  Receipt Date: 20110926
  Transmission Date: 20120403
  Serious: Yes (Hospitalization)
  Sender: FDA-Public Use
  Company Number: GXKR2008GB07011

PATIENT
  Age: 7 Year
  Sex: Female

DRUGS (7)
  1. MYCOPHENOLATE MOFETIL [Suspect]
     Indication: EVANS SYNDROME
     Dosage: UNK
  2. IMMUNOGLOBULINS, NORMAL HUMAN [Suspect]
     Indication: EVANS SYNDROME
     Dosage: UNK
     Route: 041
  3. RITUXIMAB [Suspect]
     Indication: LYMPHOPROLIFERATIVE DISORDER
  4. CYCLOSPORINE [Suspect]
     Indication: EVANS SYNDROME
     Dosage: UNK
  5. CYCLOSPORINE [Suspect]
     Dosage: UNK
  6. PREDNISOLONE [Suspect]
     Indication: EVANS SYNDROME
     Dosage: UNK
  7. RITUXIMAB [Suspect]
     Indication: EVANS SYNDROME
     Dosage: 375 MG/M2, QW
     Route: 041

REACTIONS (6)
  - DECREASED APPETITE [None]
  - PULMONARY HYPERTENSION [None]
  - COUGH [None]
  - TRICUSPID VALVE INCOMPETENCE [None]
  - OXYGEN SATURATION DECREASED [None]
  - RESPIRATORY DISORDER [None]
